FAERS Safety Report 9798796 (Version 2)
Quarter: 2014Q1

REPORT INFORMATION
  Report Type: Spontaneous
  Country: US (occurrence: US)
  Receive Date: 20140106
  Receipt Date: 20140106
  Transmission Date: 20141002
  Serious: No
  Sender: FDA-Public Use
  Company Number: US-GILEAD-2010-0029988

PATIENT
  Sex: Male
  Weight: 76.4 kg

DRUGS (7)
  1. LETAIRIS [Suspect]
     Indication: PULMONARY ARTERIAL HYPERTENSION
     Route: 048
     Dates: start: 20090105
  2. REMODULIN [Suspect]
  3. ADCIRCA [Suspect]
  4. COUMADIN [Concomitant]
  5. DIGOXIN [Concomitant]
  6. LASIX [Concomitant]
  7. RAMIPRIL [Concomitant]

REACTIONS (3)
  - No therapeutic response [Unknown]
  - Oedema [Unknown]
  - Fluid overload [Unknown]
